FAERS Safety Report 6566195-9 (Version None)
Quarter: 2010Q1

REPORT INFORMATION
  Report Type: 
  Country: None (occurrence: None)
  Receive Date: 20100202
  Receipt Date: 20100121
  Transmission Date: 20100710
  Serious: Yes (Hospitalization)
  Sender: FDA-Public Use
  Company Number: US-PFIZER INC-2010008724

PATIENT
  Age: 57 Year
  Sex: Male
  Weight: 96 kg

DRUGS (1)
  1. SUNITINIB MALATE [Suspect]
     Indication: NEOPLASM
     Dosage: 50 MG, 1X/DAY, WEEKS 1,2,4 AND 5
     Route: 048
     Dates: start: 20090610, end: 20090901

REACTIONS (4)
  - ATAXIA [None]
  - CEREBRAL ISCHAEMIA [None]
  - CONFUSIONAL STATE [None]
  - VISION BLURRED [None]
